FAERS Safety Report 5212488-7 (Version None)
Quarter: 2007Q1

REPORT INFORMATION
  Report Type: 
  Country: None (occurrence: None)
  Receive Date: 20070118
  Receipt Date: 20070106
  Transmission Date: 20070707
  Serious: Yes (Other)
  Sender: FDA-Public Use
  Company Number: US-PFIZER INC-2006120603

PATIENT
  Sex: Female
  Weight: 71.2 kg

DRUGS (13)
  1. SUTENT [Suspect]
     Indication: METASTATIC RENAL CELL CARCINOMA
     Route: 048
  2. VITAMIN E [Suspect]
  3. OMEGA 3 [Suspect]
  4. HYZAAR [Concomitant]
  5. INDERAL [Concomitant]
  6. LABETALOL HCL [Concomitant]
  7. LOPID [Concomitant]
  8. MICRONASE [Concomitant]
  9. PROTONIX [Concomitant]
  10. TRAZODONE HCL [Concomitant]
  11. VICODIN [Concomitant]
  12. ZOLOFT [Concomitant]
  13. XANAX [Concomitant]

REACTIONS (5)
  - ACTIVATED PARTIAL THROMBOPLASTIN TIME PROLONGED [None]
  - HAEMOPTYSIS [None]
  - MUCOSAL INFLAMMATION [None]
  - PAIN [None]
  - PROTHROMBIN TIME PROLONGED [None]
